FAERS Safety Report 19770552 (Version 4)
Quarter: 2021Q4

REPORT INFORMATION
  Report Type: Report from Study
  Country: CA (occurrence: CA)
  Receive Date: 20210831
  Receipt Date: 20211008
  Transmission Date: 20220303
  Serious: Yes (Other)
  Sender: FDA-Public Use
  Company Number: CA-JNJFOC-20210853858

PATIENT
  Age: 16 Year
  Sex: Female
  Weight: 62.4 kg

DRUGS (3)
  1. REMICADE [Suspect]
     Active Substance: INFLIXIMAB
     Indication: Crohn^s disease
     Route: 042
     Dates: start: 20161109
  2. REMICADE [Suspect]
     Active Substance: INFLIXIMAB
     Route: 042
     Dates: start: 20161109
  3. REMICADE [Suspect]
     Active Substance: INFLIXIMAB
     Route: 042

REACTIONS (10)
  - Crohn^s disease [Unknown]
  - Clostridium difficile infection [Unknown]
  - Candida infection [Recovering/Resolving]
  - Fatigue [Unknown]
  - Cough [Unknown]
  - Alopecia [Unknown]
  - Tonsillar hypertrophy [Recovered/Resolved]
  - Drug level increased [Unknown]
  - Off label use [Unknown]
  - Product use issue [Unknown]

NARRATIVE: CASE EVENT DATE: 20210809
